FAERS Safety Report 8846274 (Version 1)
Quarter: 2012Q4

REPORT INFORMATION
  Report Type: 
  Country: GB (occurrence: GB)
  Receive Date: 20121018
  Receipt Date: 20121018
  Transmission Date: 20130627
  Serious: Yes (Other)
  Sender: FDA-Public Use
  Company Number: GB-AMGEN-GBRSP2012065989

PATIENT
  Age: 5 Year
  Weight: 18 kg

DRUGS (2)
  1. ENBREL [Suspect]
     Indication: JUVENILE ARTHRITIS
     Dosage: 13 mg, weekly
     Route: 058
     Dates: start: 20110615, end: 20111214
  2. METHOTREXATE [Concomitant]
     Dosage: UNK UNK, UNK

REACTIONS (6)
  - Personality change [Recovered/Resolved]
  - Aggression [Recovered/Resolved]
  - Psychomotor hyperactivity [Recovered/Resolved]
  - Abnormal dreams [Recovered/Resolved]
  - Distractibility [Recovered/Resolved]
  - Disturbance in attention [Recovered/Resolved]
